FAERS Safety Report 5994671-6 (Version None)
Quarter: 2008Q4

REPORT INFORMATION
  Report Type: 
  Country: None (occurrence: None)
  Receive Date: 20081212
  Receipt Date: 20080910
  Transmission Date: 20090506
  Serious: No
  Sender: FDA-Public Use
  Company Number: US-ABBOTT-08P-163-0475974-00

PATIENT
  Sex: Female
  Weight: 123 kg

DRUGS (12)
  1. HUMIRA [Suspect]
     Indication: RHEUMATOID ARTHRITIS
     Route: 050
  2. METFORMIN HCL [Concomitant]
     Indication: DRUG USE FOR UNKNOWN INDICATION
     Route: 048
  3. MODAFINIL [Concomitant]
     Indication: INSOMNIA
     Route: 048
  4. SPIRONOLACTONE [Concomitant]
     Indication: BLOOD PRESSURE
     Route: 048
  5. BISELECT [Concomitant]
     Indication: BLOOD PRESSURE
     Route: 048
  6. VERAPAMIL [Concomitant]
     Indication: BLOOD PRESSURE
     Route: 048
  7. NORTRIPTYLINE HCL [Concomitant]
     Indication: DEPRESSION
     Route: 048
  8. GABAPENTIN [Concomitant]
     Indication: HEADACHE
     Route: 048
  9. ESCITALOPRAM OXALATE [Concomitant]
     Indication: DEPRESSION
     Route: 048
  10. TRAMADOL HYDROCHLORIDE [Concomitant]
     Indication: PAIN
     Route: 048
  11. VICODIN [Concomitant]
     Indication: PAIN
     Dosage: 5/500
     Route: 048
  12. HYDROXYCHLOROQUINE SULFATE [Concomitant]
     Indication: INFLAMMATION
     Route: 048

REACTIONS (7)
  - ARTHRALGIA [None]
  - DRUG INEFFECTIVE [None]
  - ERYTHEMA [None]
  - HEADACHE [None]
  - JOINT SWELLING [None]
  - JOINT WARMTH [None]
  - RHEUMATOID ARTHRITIS [None]
